FAERS Safety Report 13439445 (Version 2)
Quarter: 2017Q2

REPORT INFORMATION
  Report Type: Spontaneous
  Country: SE (occurrence: SE)
  Receive Date: 20170412
  Receipt Date: 20170416
  Transmission Date: 20170830
  Serious: Yes (Hospitalization, Other)
  Sender: FDA-Public Use
  Company Number: SE-009507513-1704SWE002511

PATIENT
  Age: 71 Year
  Sex: Female

DRUGS (2)
  1. EZETROL 10 MG TABLETTER [Suspect]
     Active Substance: EZETIMIBE
     Indication: LIPIDS INCREASED
     Dosage: 10 MG  DAILY
     Route: 048
     Dates: start: 20170123, end: 20170125
  2. EZETROL 10 MG TABLETTER [Suspect]
     Active Substance: EZETIMIBE
     Indication: HYPERCHOLESTEROLAEMIA

REACTIONS (8)
  - Cardiac fibrillation [Recovered/Resolved]
  - Eye swelling [Recovered/Resolved]
  - Atrial fibrillation [Unknown]
  - Hypersensitivity [Unknown]
  - Hypertension [Recovered/Resolved]
  - Vision blurred [Recovered/Resolved]
  - Headache [Recovered/Resolved]
  - Diplopia [Recovered/Resolved]

NARRATIVE: CASE EVENT DATE: 20170124
